FAERS Safety Report 24558892 (Version 1)
Quarter: 2024Q4

REPORT INFORMATION
  Report Type: Spontaneous
  Country: RS (occurrence: RS)
  Receive Date: 20241029
  Receipt Date: 20241029
  Transmission Date: 20250114
  Serious: Yes (Other)
  Sender: BRISTOL-MYERS SQUIBB COMPANY
  Company Number: RS-BRISTOL-MYERS SQUIBB COMPANY-2024-166597

PATIENT
  Age: 47 Year
  Sex: Male

DRUGS (1)
  1. OPDIVO [Suspect]
     Active Substance: NIVOLUMAB
     Indication: Metastatic malignant melanoma
     Route: 042
     Dates: start: 20240126

REACTIONS (2)
  - Nausea [Unknown]
  - Haematemesis [Unknown]

NARRATIVE: CASE EVENT DATE: 20241007
